FAERS Safety Report 17388472 (Version 3)
Quarter: 2020Q1

REPORT INFORMATION
  Report Type: Report from Study
  Country: None (occurrence: AU)
  Receive Date: 20200207
  Receipt Date: 20200226
  Transmission Date: 20200409
  Serious: Yes (Hospitalization, Other)
  Sender: FDA-Public Use
  Company Number: AU-ABBVIE-19K-008-3179829-00

PATIENT
  Sex: Male

DRUGS (1)
  1. IMBRUVICA [Suspect]
     Active Substance: IBRUTINIB
     Indication: CHRONIC LYMPHOCYTIC LEUKAEMIA
     Route: 048
     Dates: start: 20171101

REACTIONS (13)
  - Nail disorder [Recovered/Resolved]
  - Dyspnoea [Unknown]
  - Nasopharyngitis [Recovered/Resolved]
  - Orthostatic hypotension [Not Recovered/Not Resolved]
  - Vertigo [Not Recovered/Not Resolved]
  - Type 2 diabetes mellitus [Not Recovered/Not Resolved]
  - Weight decreased [Not Recovered/Not Resolved]
  - Syncope [Not Recovered/Not Resolved]
  - Nasal ulcer [Recovered/Resolved]
  - Pneumonia [Recovered/Resolved]
  - Heart rate irregular [Unknown]
  - Fatigue [Not Recovered/Not Resolved]
  - Influenza [Recovering/Resolving]
